FAERS Safety Report 16664388 (Version 1)
Quarter: 2019Q3

REPORT INFORMATION
  Report Type: Spontaneous
  Country: US (occurrence: US)
  Receive Date: 20190802
  Receipt Date: 20190802
  Transmission Date: 20191004
  Serious: No
  Sender: FDA-Public Use
  Company Number: US-ACTELION-A-US2019-193836

PATIENT
  Sex: Female

DRUGS (1)
  1. UPTRAVI [Suspect]
     Active Substance: SELEXIPAG
     Indication: PRODUCT USED FOR UNKNOWN INDICATION
     Dosage: 400 MCG, BID
     Route: 048

REACTIONS (5)
  - Balance disorder [Unknown]
  - Constipation [Unknown]
  - Arthropathy [Unknown]
  - Abdominal distension [Unknown]
  - Decreased appetite [Unknown]
